FAERS Safety Report 8104616-0 (Version None)
Quarter: 2012Q1

REPORT INFORMATION
  Report Type: 
  Country: None (occurrence: None)
  Receive Date: 20120130
  Receipt Date: 20120120
  Transmission Date: 20120608
  Serious: Yes (Hospitalization)
  Sender: FDA-Public Use
  Company Number: PHEH2012US001818

PATIENT
  Sex: Female

DRUGS (2)
  1. MYCOPHENOLATE MOFETIL (CELLCEPT) [Suspect]
     Dosage: 2000 MG, QD
     Dates: start: 20110401
  2. MYFORTIC [Suspect]
     Dosage: 360 MG, BID
     Dates: start: 20120107

REACTIONS (2)
  - DECREASED APPETITE [None]
  - NAUSEA [None]
